FAERS Safety Report 9860688 (Version 1)
Quarter: 2014Q1

REPORT INFORMATION
  Report Type: Spontaneous
  Country: US (occurrence: None)
  Receive Date: 20140131
  Receipt Date: 20140131
  Transmission Date: 20141002
  Serious: No
  Sender: FDA-Public Use
  Company Number: None

PATIENT
  Age: 64 Year
  Sex: Female
  Weight: 52.62 kg

DRUGS (1)
  1. AMOXICILLIN [Suspect]
     Indication: TOOTH REPAIR
     Dosage: 2000 MG ONCE DAILY TAKEN BY MOUTH
     Route: 048
     Dates: start: 20140111, end: 20140111

REACTIONS (1)
  - Diarrhoea [None]
